FAERS Safety Report 13754430 (Version 1)
Quarter: 2017Q3

REPORT INFORMATION
  Report Type: Spontaneous
  Country: US (occurrence: US)
  Receive Date: 20170714
  Receipt Date: 20170714
  Transmission Date: 20171127
  Serious: Yes (Other)
  Sender: FDA-Public Use
  Company Number: None

PATIENT
  Age: 63 Year
  Sex: Female
  Weight: 77.11 kg

DRUGS (10)
  1. CLONAZEPAM. [Concomitant]
     Active Substance: CLONAZEPAM
  2. BENZTROPINE [Concomitant]
     Active Substance: BENZTROPINE
  3. FISH OIL [Concomitant]
     Active Substance: FISH OIL
  4. LAMOTRIGINE. [Concomitant]
     Active Substance: LAMOTRIGINE
  5. MILK OF MAGNESIA [Concomitant]
     Active Substance: MAGNESIUM HYDROXIDE
  6. ZETIA [Concomitant]
     Active Substance: EZETIMIBE
  7. QUETIAPINE. [Concomitant]
     Active Substance: QUETIAPINE
  8. PERPHENAZINE. [Concomitant]
     Active Substance: PERPHENAZINE
  9. GLUCOSAMINE CHONDROITIN [Concomitant]
     Active Substance: CHONDROITIN SULFATE (BOVINE)\GLUCOSAMINE HYDROCHLORIDE
  10. TOPIRAMATE GENERIC [Suspect]
     Active Substance: TOPIRAMATE
     Indication: WEIGHT CONTROL
     Route: 048
     Dates: end: 20170413

REACTIONS (5)
  - Aphasia [None]
  - Impaired driving ability [None]
  - Amnesia [None]
  - Cerebral disorder [None]
  - Dysgraphia [None]

NARRATIVE: CASE EVENT DATE: 20170413
